FAERS Safety Report 8337180-1 (Version None)
Quarter: 2012Q2

REPORT INFORMATION
  Report Type: 
  Country: None (occurrence: None)
  Receive Date: 20120504
  Receipt Date: 20120430
  Transmission Date: 20120825
  Serious: Yes (Hospitalization)
  Sender: FDA-Public Use
  Company Number: US-B.I. PHARMACEUTICALS,INC./RIDGEFIELD-2012-BP-03733BP

PATIENT
  Sex: Female

DRUGS (12)
  1. ADVAIR DISKUS 100/50 [Concomitant]
     Indication: CHRONIC OBSTRUCTIVE PULMONARY DISEASE
     Route: 055
  2. GLUCOPHAGE [Concomitant]
     Indication: DIABETES MELLITUS
     Dosage: 2000 MG
     Route: 048
  3. JANUVIA [Concomitant]
     Indication: DIABETES MELLITUS
     Dosage: 100 MG
     Route: 048
  4. PROZAC [Concomitant]
     Indication: DEPRESSION
     Dosage: 60 MG
     Route: 048
  5. SYNTHROID [Concomitant]
     Indication: HYPOTHYROIDISM
     Dosage: 175 MCG
     Route: 048
  6. SPIRIVA [Suspect]
     Indication: CHRONIC OBSTRUCTIVE PULMONARY DISEASE
     Dosage: 18 MCG
     Route: 055
     Dates: start: 20100901
  7. PLAVIX [Concomitant]
     Dosage: 75 MG
     Route: 048
  8. METOPROLOL TARTRATE [Concomitant]
     Indication: HYPERTENSION
     Dosage: 12.5 MG
     Route: 048
  9. LASIX [Concomitant]
     Indication: FLUID RETENTION
     Dosage: 20 MG
     Route: 048
  10. ASPIRIN [Concomitant]
     Dosage: 81 MG
     Route: 048
  11. LOSARTAN POTASSIUM [Concomitant]
     Dosage: 25 MG
     Route: 048
  12. LIPITOR [Concomitant]
     Indication: BLOOD CHOLESTEROL INCREASED
     Dosage: 20 MG
     Route: 048

REACTIONS (3)
  - MYOCARDIAL INFARCTION [None]
  - BREAST CANCER [None]
  - PNEUMONIA [None]
